FAERS Safety Report 14937695 (Version 1)
Quarter: 2018Q2

REPORT INFORMATION
  Report Type: Spontaneous
  Country: US (occurrence: US)
  Receive Date: 20180525
  Receipt Date: 20180525
  Transmission Date: 20180711
  Serious: Yes (Death, Other)
  Sender: FDA-Public Use
  Company Number: US-ROCHE-2129866

PATIENT
  Age: 50 Year
  Sex: Male

DRUGS (1)
  1. KLONOPIN [Suspect]
     Active Substance: CLONAZEPAM
     Indication: ANXIETY
     Route: 065
     Dates: start: 2011

REACTIONS (3)
  - Brain injury [Unknown]
  - Withdrawal syndrome [Unknown]
  - Completed suicide [Fatal]

NARRATIVE: CASE EVENT DATE: 20180505
